FAERS Safety Report 5820556-1 (Version None)
Quarter: 2008Q3

REPORT INFORMATION
  Report Type: 
  Country: None (occurrence: None)
  Receive Date: 20080724
  Receipt Date: 20071025
  Transmission Date: 20090109
  Serious: No
  Sender: FDA-Public Use
  Company Number: A0689787A

PATIENT
  Age: 62 Year
  Sex: Male

DRUGS (16)
  1. AVANDIA [Suspect]
     Dosage: 4MG PER DAY
     Route: 048
     Dates: start: 20070501, end: 20070801
  2. DOXAZOSIN MESYLATE [Concomitant]
  3. MESYLATE DIHYDROERGOTAMINE [Concomitant]
  4. GEMFIBROZIL [Concomitant]
  5. SKELAXIN [Concomitant]
  6. TYLENOL [Concomitant]
  7. GLYBURIDE [Concomitant]
  8. ALPRAZOLAM [Concomitant]
  9. ASPIRIN [Concomitant]
  10. LEVORA 0.15/30-28 [Concomitant]
  11. TRAMADOL HCL [Concomitant]
  12. AMLODIPINE BESYLATE AND BENAZEPRIL HCL [Concomitant]
  13. NEXIUM [Concomitant]
  14. VITAMIN E [Concomitant]
  15. ASCORBIC ACID [Concomitant]
  16. MULTI-VITAMIN [Concomitant]

REACTIONS (3)
  - ABASIA [None]
  - MUSCULAR WEAKNESS [None]
  - PAIN IN EXTREMITY [None]
